FAERS Safety Report 13591263 (Version 2)
Quarter: 2017Q2

REPORT INFORMATION
  Report Type: Spontaneous
  Country: SK (occurrence: SK)
  Receive Date: 20170530
  Receipt Date: 20170602
  Transmission Date: 20170830
  Serious: Yes (Other)
  Sender: FDA-Public Use
  Company Number: SK-PFIZER INC-2017231322

PATIENT
  Sex: Female

DRUGS (5)
  1. LYRICA [Suspect]
     Active Substance: PREGABALIN
     Indication: TRIGEMINAL NEURALGIA
     Dosage: 150 MG, 2X/DAY (IN MORNING AND IN EVENING)
  2. TRILEPTAL [Concomitant]
     Active Substance: OXCARBAZEPINE
  3. LYRICA [Suspect]
     Active Substance: PREGABALIN
     Indication: ALVEOLAR OSTEITIS
  4. ZARACET [Concomitant]
  5. ATARAX [Concomitant]
     Active Substance: HYDROXYZINE HYDROCHLORIDE
     Indication: ANXIETY

REACTIONS (2)
  - Weight increased [Unknown]
  - Tuberculin test positive [Unknown]
